FAERS Safety Report 23292172 (Version 1)
Quarter: 2023Q4

REPORT INFORMATION
  Report Type: Spontaneous
  Country: CN (occurrence: CN)
  Receive Date: 20231213
  Receipt Date: 20231213
  Transmission Date: 20240110
  Serious: Yes (Other)
  Sender: FDA-Public Use
  Company Number: CN-SA-SAC20231212000088

PATIENT
  Age: 56 Year
  Sex: Female
  Weight: 62.5 kg

DRUGS (2)
  1. OXALIPLATIN [Suspect]
     Active Substance: OXALIPLATIN
     Indication: Adenocarcinoma gastric
     Dosage: 90 MG, QD
     Route: 041
     Dates: start: 20231129, end: 20231129
  2. PACLITAXEL [Suspect]
     Active Substance: PACLITAXEL
     Indication: Adenocarcinoma gastric
     Dosage: 230 MG, QD
     Route: 041
     Dates: start: 20231129, end: 20231129

REACTIONS (1)
  - Amaurosis fugax [Recovering/Resolving]

NARRATIVE: CASE EVENT DATE: 20231201
